FAERS Safety Report 21836109 (Version 1)
Quarter: 2023Q1

REPORT INFORMATION
  Report Type: Spontaneous
  Country: US (occurrence: None)
  Receive Date: 20230104
  Receipt Date: 20230104
  Transmission Date: 20230417
  Serious: Yes (Hospitalization)
  Sender: FDA-Public Use
  Company Number: None

PATIENT
  Sex: Female

DRUGS (1)
  1. HUMIRA [Suspect]
     Active Substance: ADALIMUMAB
     Dosage: 40MG OTHER  SUBCUTANEOUS
     Route: 058

REACTIONS (4)
  - COVID-19 [None]
  - COVID-19 pneumonia [None]
  - Rhinitis [None]
  - Bacterial infection [None]
